FAERS Safety Report 6735643-3 (Version None)
Quarter: 2010Q2

REPORT INFORMATION
  Report Type: 
  Country: None (occurrence: None)
  Receive Date: 20100521
  Receipt Date: 20100508
  Transmission Date: 20101027
  Serious: Yes (Hospitalization, Other)
  Sender: FDA-Public Use
  Company Number: PHHY2010DE27963

PATIENT
  Sex: Male

DRUGS (2)
  1. RITALIN [Suspect]
     Indication: ATTENTION DEFICIT/HYPERACTIVITY DISORDER
     Dosage: 40-50 MG/DAY
     Route: 048
  2. RITALIN [Suspect]
     Dosage: 20 DF WITH A SNORT LINE

REACTIONS (7)
  - ALCOHOLISM [None]
  - CONFUSIONAL STATE [None]
  - DRUG DEPENDENCE [None]
  - INTENTIONAL DRUG MISUSE [None]
  - INTENTIONAL OVERDOSE [None]
  - SLEEP DISORDER [None]
  - SOMNOLENCE [None]
